FAERS Safety Report 20724781 (Version 1)
Quarter: 2022Q2

REPORT INFORMATION
  Report Type: Spontaneous
  Country: US (occurrence: None)
  Receive Date: 20220418
  Receipt Date: 20220418
  Transmission Date: 20220720
  Serious: Yes (unspecified)
  Sender: FDA-Public Use
  Company Number: None

PATIENT
  Age: 51 Year
  Sex: Male
  Weight: 108 kg

DRUGS (7)
  1. NURTEC ODT [Suspect]
     Active Substance: RIMEGEPANT SULFATE
     Indication: Migraine prophylaxis
     Dosage: OTHER FREQUENCY : EVERY OTHER DAY;?
     Route: 048
     Dates: start: 20220402
  2. ZOLMITRIPTAN [Suspect]
     Active Substance: ZOLMITRIPTAN
     Indication: Migraine
     Dosage: FREQUENCY : AS NEEDED;?
     Route: 048
     Dates: start: 20200526
  3. Naproxen 500 mG oral tablet [Concomitant]
  4. albuterol 108 mcG/Act inhaler [Concomitant]
  5. chlorthalidone 25 mG oral tablet [Concomitant]
  6. propranolol 80 mG CR oral capsule [Concomitant]
  7. loperamide 2 mG oral tablet [Concomitant]

REACTIONS (4)
  - Headache [None]
  - Nausea [None]
  - Dizziness [None]
  - Paraesthesia [None]

NARRATIVE: CASE EVENT DATE: 20220416
